FAERS Safety Report 9470311 (Version 1)
Quarter: 2013Q3

REPORT INFORMATION
  Report Type: Spontaneous
  Country: US (occurrence: US)
  Receive Date: 20130822
  Receipt Date: 20130822
  Transmission Date: 20140515
  Serious: No
  Sender: FDA-Public Use
  Company Number: US-SANOFI-AVENTIS-2012SA070450

PATIENT
  Age: 80 Year
  Sex: Male

DRUGS (10)
  1. MULTAQ [Suspect]
     Route: 048
     Dates: start: 2012
  2. DABIGATRAN ETEXILATE [Concomitant]
  3. KEPPRA [Concomitant]
  4. ZOLOFT [Concomitant]
  5. ALL OTHER THERAPEUTIC PRODUCTS [Concomitant]
  6. TAMSULOSIN HYDROCHLORIDE [Concomitant]
  7. DOXAZOSIN MESILATE [Concomitant]
  8. NAMENDA [Concomitant]
  9. EXELON [Concomitant]
  10. ZYRTEC [Concomitant]

REACTIONS (4)
  - Insomnia [Unknown]
  - Headache [Unknown]
  - Personality change [Unknown]
  - Hostility [Unknown]
